FAERS Safety Report 5033751-9 (Version None)
Quarter: 2006Q2

REPORT INFORMATION
  Report Type: 
  Country: None (occurrence: None)
  Receive Date: 20060623
  Receipt Date: 20060607
  Transmission Date: 20061013
  Serious: Yes (Death)
  Sender: FDA-Public Use
  Company Number: AU-BRISTOL-MYERS SQUIBB COMPANY-13407036

PATIENT
  Age: 74 Year
  Sex: Male

DRUGS (17)
  1. ERBITUX [Suspect]
     Indication: COLORECTAL CANCER METASTATIC
     Route: 041
     Dates: start: 20050831
  2. IRINOTECAN [Suspect]
     Indication: COLORECTAL CANCER METASTATIC
     Route: 042
     Dates: start: 20050831
  3. LEUCOVORIN CALCIUM [Suspect]
     Indication: COLORECTAL CANCER METASTATIC
     Route: 042
     Dates: start: 20050831
  4. FLUOROURACIL [Suspect]
     Indication: COLORECTAL CANCER METASTATIC
     Route: 042
     Dates: start: 20050831
  5. OMEPRAZOLE [Concomitant]
  6. NIFEDIPINE [Concomitant]
  7. NITRAZEPAM [Concomitant]
  8. AVAPRO HCT [Concomitant]
  9. PROPANOL [Concomitant]
  10. MINOCYCLINE HCL [Concomitant]
  11. BETAMETHASONE [Concomitant]
  12. HYDROCORTISONE [Concomitant]
  13. BETADINE [Concomitant]
  14. PREDNEFRIN [Concomitant]
  15. PHENERGAN HCL [Concomitant]
  16. ONDANSETRON HCL [Concomitant]
  17. DEXAMETHASONE TAB [Concomitant]

REACTIONS (1)
  - ACUTE MYOCARDIAL INFARCTION [None]
